FAERS Safety Report 25737077 (Version 1)
Quarter: 2025Q3

REPORT INFORMATION
  Report Type: Spontaneous
  Country: CN (occurrence: CN)
  Receive Date: 20250828
  Receipt Date: 20250828
  Transmission Date: 20251021
  Serious: Yes (Other)
  Sender: PFIZER
  Company Number: CN-TAKEDA-2025TUS074270

PATIENT
  Age: 36 Year
  Sex: Female
  Weight: 68 kg

DRUGS (19)
  1. BRENTUXIMAB VEDOTIN [Suspect]
     Active Substance: BRENTUXIMAB VEDOTIN
     Indication: Hodgkin^s disease
     Dosage: 50 MILLIGRAM, QD
     Route: 041
     Dates: start: 20250430
  2. BRENTUXIMAB VEDOTIN [Suspect]
     Active Substance: BRENTUXIMAB VEDOTIN
     Dosage: 72.4 MILLIGRAM, QD
     Route: 041
     Dates: end: 20250430
  3. BRENTUXIMAB VEDOTIN [Suspect]
     Active Substance: BRENTUXIMAB VEDOTIN
     Dosage: 50 MILLIGRAM, QD
     Route: 041
     Dates: start: 20250529, end: 20250529
  4. ETOPOSIDE [Suspect]
     Active Substance: ETOPOSIDE
     Indication: Hodgkin^s disease
     Dosage: 5 MILLILITER, QD
     Route: 041
     Dates: start: 20250501
  5. ETOPOSIDE [Suspect]
     Active Substance: ETOPOSIDE
     Dosage: 3.75 MILLILITER, QD
     Route: 041
     Dates: start: 20250501, end: 20250503
  6. ETOPOSIDE [Suspect]
     Active Substance: ETOPOSIDE
     Dosage: 5 MILLILITER, QD
     Route: 041
     Dates: start: 20250530, end: 20250601
  7. ETOPOSIDE [Suspect]
     Active Substance: ETOPOSIDE
     Dosage: 3.75 MILLILITER, QD
     Route: 041
     Dates: start: 20250530, end: 20250601
  8. OXALIPLATIN [Suspect]
     Active Substance: OXALIPLATIN
     Indication: Hodgkin^s disease
     Dosage: 220 MILLIGRAM, QD
     Route: 041
     Dates: start: 20250502, end: 20250531
  9. IFOSFAMIDE [Suspect]
     Active Substance: IFOSFAMIDE
     Indication: Hodgkin^s disease
     Dosage: 3 GRAM, QD
     Route: 041
     Dates: start: 20250501, end: 20250503
  10. IFOSFAMIDE [Suspect]
     Active Substance: IFOSFAMIDE
     Dosage: 3 GRAM, QD
     Route: 041
     Dates: start: 20250530, end: 20250601
  11. SODIUM CHLORIDE [Suspect]
     Active Substance: SODIUM CHLORIDE
     Indication: Prophylaxis
     Dosage: 100 MILLILITER, QD
     Route: 041
     Dates: start: 20250430, end: 20250430
  12. SODIUM CHLORIDE [Suspect]
     Active Substance: SODIUM CHLORIDE
     Dosage: 500 MILLILITER, QD
     Route: 041
     Dates: start: 20250501, end: 20250503
  13. SODIUM CHLORIDE [Suspect]
     Active Substance: SODIUM CHLORIDE
     Dosage: 300 MILLILITER, QD
     Route: 041
     Dates: start: 20250501, end: 20250503
  14. SODIUM CHLORIDE [Suspect]
     Active Substance: SODIUM CHLORIDE
     Dosage: 100 MILLILITER, QD
     Route: 041
     Dates: start: 20250529, end: 20250529
  15. SODIUM CHLORIDE [Suspect]
     Active Substance: SODIUM CHLORIDE
     Dosage: 500 MILLILITER, QD
     Route: 041
     Dates: start: 20250530, end: 20250601
  16. SODIUM CHLORIDE [Suspect]
     Active Substance: SODIUM CHLORIDE
     Dosage: 300 MILLILITER, QD
     Route: 041
     Dates: start: 20250530, end: 20250601
  17. SODIUM CHLORIDE [Suspect]
     Active Substance: SODIUM CHLORIDE
     Dosage: 500 MILLILITER, QD
     Route: 041
     Dates: start: 20250530, end: 20250601
  18. DEXTROSE [Suspect]
     Active Substance: DEXTROSE MONOHYDRATE
     Indication: Prophylaxis
     Route: 041
     Dates: start: 20250502, end: 20250502
  19. DEXTROSE [Suspect]
     Active Substance: DEXTROSE MONOHYDRATE
     Route: 041
     Dates: start: 20250531, end: 20250531

REACTIONS (1)
  - Pancytopenia [Recovering/Resolving]

NARRATIVE: CASE EVENT DATE: 20250504
